FAERS Safety Report 9219322 (Version 1)
Quarter: 2013Q2

REPORT INFORMATION
  Report Type: Spontaneous
  Country: US (occurrence: None)
  Receive Date: 20130408
  Receipt Date: 20130408
  Transmission Date: 20140414
  Serious: Yes (Death)
  Sender: FDA-Public Use
  Company Number: None

PATIENT
  Age: 33 Year
  Sex: Female
  Weight: 63.5 kg

DRUGS (2)
  1. KLONOPIN [Suspect]
     Indication: ANXIETY
     Dates: start: 20130104, end: 20130106
  2. LEXAPRO [Suspect]
     Indication: DEPRESSION
     Dates: start: 20130104, end: 20130106

REACTIONS (2)
  - Completed suicide [None]
  - Intentional overdose [None]
